FAERS Safety Report 21378043 (Version 3)
Quarter: 2023Q1

REPORT INFORMATION
  Report Type: Spontaneous
  Country: US (occurrence: US)
  Receive Date: 20220926
  Receipt Date: 20230119
  Transmission Date: 20230417
  Serious: No
  Sender: FDA-Public Use
  Company Number: US-AMGEN-USASP2022164061

PATIENT
  Age: 55 Year
  Sex: Female
  Weight: 79.6 kg

DRUGS (1)
  1. NEULASTA [Suspect]
     Active Substance: PEGFILGRASTIM
     Indication: Product used for unknown indication
     Dosage: UNK
     Route: 065

REACTIONS (3)
  - Fall [Recovered/Resolved]
  - Unintentional medical device removal [Recovered/Resolved]
  - Device adhesion issue [Recovered/Resolved]

NARRATIVE: CASE EVENT DATE: 20220903
